FAERS Safety Report 25626847 (Version 3)
Quarter: 2025Q4

REPORT INFORMATION
  Report Type: Spontaneous
  Country: EU (occurrence: EU)
  Receive Date: 20250731
  Receipt Date: 20251110
  Transmission Date: 20260117
  Serious: Yes (Hospitalization, Other)
  Sender: AUROBINDO
  Company Number: EU-SANDOZ-SDZ2025FR051451

PATIENT
  Age: 26 Year
  Sex: Female

DRUGS (5)
  1. TERIFLUNOMIDE [Suspect]
     Active Substance: TERIFLUNOMIDE
     Indication: Multiple sclerosis
     Dosage: UNK
     Route: 048
     Dates: start: 2015
  2. RIFAMPIN [Concomitant]
     Active Substance: RIFAMPIN
     Indication: Product used for unknown indication
     Dosage: 10 MILLIGRAM/KILOGRAM, ONCE A DAY (10 MG/KG, QD (720 MG/DAY),
     Route: 065
  3. ISONIAZID [Concomitant]
     Active Substance: ISONIAZID
     Indication: Product used for unknown indication
     Dosage: 4 MILLIGRAM/KILOGRAM, ONCE A DAY (4 MG/KG, QD (300 MG/DAY)
     Route: 065
  4. ETHAMBUTOL [Concomitant]
     Active Substance: ETHAMBUTOL HYDROCHLORIDE
     Indication: Product used for unknown indication
     Dosage: 14 MILLIGRAM/KILOGRAM, ONCE A DAY (14 MG/KG, QD 1000 MG/DAY)
     Route: 065
  5. PYRAZINAMIDE [Concomitant]
     Active Substance: PYRAZINAMIDE
     Indication: Product used for unknown indication
     Dosage: 24 MILLIGRAM/KILOGRAM, ONCE A DAY (24 MG/KG, QD 1800 MG/DAY)
     Route: 065

REACTIONS (6)
  - Pulmonary tuberculosis [Unknown]
  - Tuberculosis of genitourinary system [Unknown]
  - Tuberculosis [Recovered/Resolved]
  - Cough [Recovered/Resolved]
  - Pyrexia [Recovered/Resolved]
  - Pulmonary mass [Recovered/Resolved]

NARRATIVE: CASE EVENT DATE: 20230601
